FAERS Safety Report 8142047-8 (Version None)
Quarter: 2012Q1

REPORT INFORMATION
  Report Type: 
  Country: None (occurrence: None)
  Receive Date: 20120216
  Receipt Date: 20120206
  Transmission Date: 20120608
  Serious: Yes (Hospitalization, Other)
  Sender: FDA-Public Use
  Company Number: FR-MERCK-0906FRA00081

PATIENT
  Age: 69 Year
  Sex: Female

DRUGS (2)
  1. HYZAAR [Suspect]
     Indication: HYPERTENSION
     Route: 048
     Dates: start: 20090219, end: 20090325
  2. ALLOPURINOL [Suspect]
     Route: 048
     Dates: start: 20090219, end: 20090317

REACTIONS (3)
  - ENCEPHALITIS HERPES [None]
  - DRUG RASH WITH EOSINOPHILIA AND SYSTEMIC SYMPTOMS [None]
  - MENINGITIS HERPES [None]
